FAERS Safety Report 7597589-0 (Version None)
Quarter: 2011Q3

REPORT INFORMATION
  Report Type: 
  Country: None (occurrence: None)
  Receive Date: 20110708
  Receipt Date: 20110512
  Transmission Date: 20111222
  Serious: Yes (Other)
  Sender: FDA-Public Use
  Company Number: CA-GLAXOSMITHKLINE-A0934980A

PATIENT
  Age: 32 Year
  Sex: Male
  Weight: 52.3 kg

DRUGS (2)
  1. NICODERM [Suspect]
     Indication: SMOKING CESSATION THERAPY
     Dosage: 15MG PER DAY
     Route: 062
     Dates: start: 20110506, end: 20110510
  2. NICORETTE [Suspect]
     Indication: SMOKING CESSATION THERAPY
     Route: 002
     Dates: start: 20110506

REACTIONS (9)
  - CHEST PAIN [None]
  - PRODUCT QUALITY ISSUE [None]
  - SLEEP PARALYSIS [None]
  - INSOMNIA [None]
  - SOMNOLENCE [None]
  - MALAISE [None]
  - HYPERTENSION [None]
  - NIGHTMARE [None]
  - PARAESTHESIA [None]
